FAERS Safety Report 6396254-5 (Version None)
Quarter: 2009Q4

REPORT INFORMATION
  Report Type: 
  Country: None (occurrence: None)
  Receive Date: 20091012
  Receipt Date: 20070606
  Transmission Date: 20100525
  Serious: Yes (Other)
  Sender: FDA-Public Use
  Company Number: US-ASTRAZENECA-2006UW12151

PATIENT
  Age: 60 Year
  Sex: Female
  Weight: 110.7 kg

DRUGS (15)
  1. SEROQUEL [Suspect]
     Indication: DEPRESSION
     Route: 048
     Dates: start: 19980101
  2. SEROQUEL [Suspect]
     Dosage: 25 TO 50 MG
     Route: 048
     Dates: start: 20000515
  3. PROZAC [Concomitant]
     Dosage: 20 - 40 MG
     Dates: start: 20000807
  4. RISPERDAL [Concomitant]
     Route: 048
     Dates: start: 19991105
  5. CELEXA [Concomitant]
     Dosage: 20 - 40 MG
     Route: 048
     Dates: start: 19991105
  6. LASIX [Concomitant]
     Route: 048
     Dates: start: 19991119
  7. PRILOSEC [Concomitant]
     Dosage: 20 - 40 MG
     Dates: start: 19991119
  8. XANAX [Concomitant]
     Dosage: 0.5 - 1 MG
     Dates: start: 19980918
  9. PAXIL [Concomitant]
     Dates: start: 19980918
  10. ACCUPRIL [Concomitant]
     Dosage: 10 - 20 MG
     Route: 048
     Dates: start: 19980918
  11. PLAVIX [Concomitant]
     Route: 048
     Dates: start: 19991119
  12. LIPITOR [Concomitant]
     Dosage: 10 - 40 MG
     Dates: start: 19991119
  13. LOPRESSOR [Concomitant]
     Dosage: 25 - 50 MG
     Dates: start: 19991119
  14. ASPIRIN [Concomitant]
     Dates: start: 19991119
  15. K-DUR [Concomitant]
     Route: 048
     Dates: start: 19991119

REACTIONS (10)
  - DIABETES MELLITUS [None]
  - DIABETES MELLITUS INADEQUATE CONTROL [None]
  - DIABETIC FOOT [None]
  - DIABETIC FOOT INFECTION [None]
  - GLUCOSE TOLERANCE IMPAIRED [None]
  - HYPOGLYCAEMIA [None]
  - KETOACIDOSIS [None]
  - NEUROPATHY PERIPHERAL [None]
  - RETINOPATHY [None]
  - TYPE 2 DIABETES MELLITUS [None]
